FAERS Safety Report 4560641-8 (Version None)
Quarter: 2005Q1

REPORT INFORMATION
  Report Type: 
  Country: None (occurrence: None)
  Receive Date: 20050121
  Receipt Date: 20050111
  Transmission Date: 20050727
  Serious: Yes (Death)
  Sender: FDA-Public Use
  Company Number: 2004-11-0012

PATIENT
  Age: 63 Year
  Sex: Male
  Weight: 69 kg

DRUGS (6)
  1. REBETOL [Suspect]
     Indication: HEPATITIS C
     Dosage: 800 MG ORAL
     Route: 048
     Dates: start: 20030114, end: 20030630
  2. INTRON A (INTERERON ALFA-2B RECOMBINANT) INJECTABLE POWDER [Suspect]
     Indication: HEPATITIS C
     Dosage: SEE IMAGE
     Route: 030
     Dates: start: 20030114, end: 20030127
  3. INTRON A (INTERERON ALFA-2B RECOMBINANT) INJECTABLE POWDER [Suspect]
     Indication: HEPATITIS C
     Dosage: SEE IMAGE
     Route: 030
     Dates: start: 20030129, end: 20031106
  4. BERIZYM [Concomitant]
  5. GASTROM [Concomitant]
  6. PAROTIN [Concomitant]

REACTIONS (1)
  - DEATH [None]
